FAERS Safety Report 8421578-7 (Version None)
Quarter: 2012Q2

REPORT INFORMATION
  Report Type: 
  Country: None (occurrence: None)
  Receive Date: 20120608
  Receipt Date: 20120521
  Transmission Date: 20120825
  Serious: Yes (Other)
  Sender: FDA-Public Use
  Company Number: SE-PFIZER INC-2012129846

PATIENT
  Sex: Female

DRUGS (3)
  1. ATARAX [Suspect]
     Dosage: 10 MG TABLET ( 1-2 AS NEEDED)
     Route: 048
  2. SERTRALINE HYDROCHLORIDE [Suspect]
     Dosage: 200 MG, UNK
     Route: 048
     Dates: end: 20111001
  3. CETRORELIX ACETATE [Concomitant]
     Indication: OVULATION INDUCTION

REACTIONS (3)
  - MATERNAL EXPOSURE DURING PREGNANCY [None]
  - CAESAREAN SECTION [None]
  - NERVE INJURY [None]
